FAERS Safety Report 18233182 (Version 1)
Quarter: 2020Q3

REPORT INFORMATION
  Report Type: Spontaneous
  Country: US (occurrence: US)
  Receive Date: 20200904
  Receipt Date: 20200904
  Transmission Date: 20201103
  Serious: Yes (Disabling)
  Sender: FDA-Public Use
  Company Number: None

PATIENT
  Age: 55 Year
  Sex: Male
  Weight: 81 kg

DRUGS (5)
  1. PROPECIA [Concomitant]
     Active Substance: FINASTERIDE
  2. NEXIUM [Concomitant]
     Active Substance: ESOMEPRAZOLE MAGNESIUM
  3. TESTOSTERONE. [Concomitant]
     Active Substance: TESTOSTERONE
  4. SIMVASTATIN. [Concomitant]
     Active Substance: SIMVASTATIN
  5. SKYRIZI [Suspect]
     Active Substance: RISANKIZUMAB-RZAA
     Indication: PSORIASIS
     Dosage: ?          OTHER FREQUENCY:EVERY 12 WEEKS;OTHER ROUTE:SUBCUTANEOUS INJECTABLE?
     Dates: start: 20191002, end: 20200501

REACTIONS (1)
  - Cough [None]

NARRATIVE: CASE EVENT DATE: 20200401
